FAERS Safety Report 18831095 (Version 1)
Quarter: 2021Q1

REPORT INFORMATION
  Report Type: Spontaneous
  Country: US (occurrence: US)
  Receive Date: 20210201
  Receipt Date: 20210201
  Transmission Date: 20210419
  Serious: No
  Sender: FDA-Public Use
  Company Number: US-ABBVIE-20K-163-3673106-00

PATIENT
  Weight: 42.68 kg

DRUGS (4)
  1. PREDNISONE. [Concomitant]
     Active Substance: PREDNISONE
     Indication: PRODUCT USED FOR UNKNOWN INDICATION
     Route: 048
     Dates: start: 20200617
  2. HUMIRA [Suspect]
     Active Substance: ADALIMUMAB
     Indication: RHEUMATOID ARTHRITIS
     Route: 058
  3. HUMIRA [Suspect]
     Active Substance: ADALIMUMAB
     Indication: RHEUMATOID ARTHRITIS
  4. ALPRAZOLAM. [Concomitant]
     Active Substance: ALPRAZOLAM
     Indication: PRODUCT USED FOR UNKNOWN INDICATION
     Route: 048

REACTIONS (21)
  - Infection [Unknown]
  - Psoriasis [Unknown]
  - Anaemia [Unknown]
  - Osteopenia [Unknown]
  - Dry eye [Unknown]
  - Vitamin D deficiency [Unknown]
  - Epicondylitis [Not Recovered/Not Resolved]
  - Raynaud^s phenomenon [Unknown]
  - Skin discolouration [Unknown]
  - Myalgia [Unknown]
  - Photosensitivity reaction [Unknown]
  - Musculoskeletal stiffness [Unknown]
  - Neck pain [Unknown]
  - Arthralgia [Unknown]
  - Hand deformity [Unknown]
  - Rheumatoid factor positive [Unknown]
  - Weight decreased [Unknown]
  - Bursitis [Unknown]
  - Gilbert^s syndrome [Unknown]
  - Rheumatoid arthritis [Unknown]
  - Fatigue [Unknown]
